FAERS Safety Report 5215697-6 (Version None)
Quarter: 2007Q1

REPORT INFORMATION
  Report Type: 
  Country: None (occurrence: None)
  Receive Date: 20070123
  Receipt Date: 20070112
  Transmission Date: 20070707
  Serious: Yes (Hospitalization)
  Sender: FDA-Public Use
  Company Number: SE-JNJFOC-20070102950

PATIENT
  Age: 27 Year
  Sex: Female

DRUGS (5)
  1. REMICADE [Suspect]
     Indication: CROHN'S DISEASE
     Route: 042
  2. FOLACIN [Concomitant]
  3. BEHEPAN [Concomitant]
  4. EPREX [Concomitant]
  5. VENOFER [Concomitant]

REACTIONS (5)
  - LARGE INTESTINAL ULCER HAEMORRHAGE [None]
  - LARGE INTESTINE PERFORATION [None]
  - NECROTISING COLITIS [None]
  - PERITONITIS [None]
  - SEPSIS [None]
